FAERS Safety Report 20467136 (Version 3)
Quarter: 2022Q2

REPORT INFORMATION
  Report Type: Spontaneous
  Country: US (occurrence: US)
  Receive Date: 20220214
  Receipt Date: 20220525
  Transmission Date: 20220720
  Serious: Yes (Other)
  Sender: FDA-Public Use
  Company Number: US-JNJFOC-20220213939

PATIENT
  Age: 50 Year
  Sex: Female

DRUGS (14)
  1. ELMIRON [Suspect]
     Active Substance: PENTOSAN POLYSULFATE SODIUM
     Indication: Cystitis interstitial
     Route: 048
     Dates: start: 19981216, end: 20020507
  2. AVAPRO [Concomitant]
     Active Substance: IRBESARTAN
     Indication: Hypertension
     Route: 065
     Dates: start: 1998
  3. CENTRUM [ASCORBIC ACID;BIOTIN;CALCIUM PANTOTHENATE;CYANOCOBALAMIN;ERGO [Concomitant]
     Indication: Vitamin supplementation
     Dates: start: 2003
  4. CALCIUM GLYCEROPHOSPHATE [Concomitant]
     Active Substance: CALCIUM GLYCEROPHOSPHATE
     Indication: Cystitis interstitial
     Dates: start: 2003
  5. PREVAGEN [APOAEQUORIN] [Concomitant]
     Indication: Memory impairment
     Dates: start: 2009
  6. IRBESARTAN [Concomitant]
     Active Substance: IRBESARTAN
     Indication: Blood pressure measurement
     Dates: start: 1998
  7. MAGNESIUM CITRATE [Concomitant]
     Active Substance: MAGNESIUM CITRATE
     Indication: Blood pressure measurement
     Dates: start: 2006
  8. VITAMINS D3 [Concomitant]
     Indication: Vitamin supplementation
     Dates: start: 2003, end: 2021
  9. CALCIUM [Concomitant]
     Active Substance: CALCIUM
     Indication: Bone disorder
     Dates: start: 2003
  10. CHONDROITIN SULFATE;GLUCOSAMINE HYDROIODIDE [Concomitant]
     Indication: Cystitis interstitial
     Dates: start: 2003
  11. ALOE VERA LEAF [Concomitant]
     Active Substance: ALOE VERA LEAF
     Indication: Cystitis interstitial
     Route: 065
     Dates: start: 2003
  12. QUERCETIN [Concomitant]
     Active Substance: QUERCETIN
     Indication: Multiple allergies
     Dates: start: 2003
  13. QUERCETIN [Concomitant]
     Active Substance: QUERCETIN
     Indication: Bladder disorder
  14. LUTEIN [TOCOPHERYL ACETATE;XANTOFYL;ZEAXANTHIN] [Concomitant]
     Indication: Eye disorder
     Dates: start: 2005

REACTIONS (3)
  - Retinal pigmentation [Not Recovered/Not Resolved]
  - Off label use [Unknown]
  - Product use issue [Unknown]

NARRATIVE: CASE EVENT DATE: 19981216
